FAERS Safety Report 9378649 (Version 2)
Quarter: 2013Q3

REPORT INFORMATION
  Report Type: Spontaneous
  Country: IT (occurrence: IT)
  Receive Date: 20130702
  Receipt Date: 20130813
  Transmission Date: 20140515
  Serious: Yes (Other)
  Sender: FDA-Public Use
  Company Number: IT-RANBAXY-2013R1-70633

PATIENT
  Age: 63 Year
  Sex: Female

DRUGS (1)
  1. AMOXICILLIN [Suspect]
     Indication: OROPHARYNGEAL PAIN
     Dosage: 1000 MG, SINGLE
     Route: 048
     Dates: start: 20130611, end: 20130611

REACTIONS (5)
  - Cough [Recovered/Resolved]
  - Burning sensation [Recovered/Resolved]
  - Dry mouth [Recovered/Resolved]
  - Erythema [Recovered/Resolved]
  - Pruritus generalised [Recovered/Resolved]
